FAERS Safety Report 4913517-8 (Version None)
Quarter: 2006Q1

REPORT INFORMATION
  Report Type: 
  Country: None (occurrence: None)
  Receive Date: 20060216
  Receipt Date: 20060206
  Transmission Date: 20060701
  Serious: Yes (Other)
  Sender: FDA-Public Use
  Company Number: PHBS2006DE01992

PATIENT
  Age: 70 Year
  Sex: Female

DRUGS (2)
  1. AREDIA [Suspect]
     Indication: METASTASES TO BONE
     Route: 065
  2. ZOMETA [Suspect]
     Indication: METASTASES TO BONE
     Route: 065

REACTIONS (3)
  - ACTINOMYCOSIS [None]
  - OSTEONECROSIS [None]
  - TOOTH EXTRACTION [None]
